FAERS Safety Report 8817938 (Version 2)
Quarter: 2012Q4

REPORT INFORMATION
  Report Type: 
  Country: US (occurrence: US)
  Receive Date: 20121001
  Receipt Date: 20121017
  Transmission Date: 20130627
  Serious: Yes (Death)
  Sender: FDA-Public Use
  Company Number: US-GILEAD-2012-0061922

PATIENT
  Sex: Female

DRUGS (6)
  1. LETAIRIS [Suspect]
     Indication: PULMONARY HYPERTENSION
     Dosage: 5 mg, QD
     Route: 048
     Dates: start: 20120529, end: 201209
  2. LETAIRIS [Suspect]
     Indication: OBESITY
  3. LETAIRIS [Suspect]
     Indication: HYPOVENTILATION
  4. LASIX                              /00032601/ [Concomitant]
     Dosage: 80 mg, QD
     Dates: start: 20120524
  5. WARFARIN [Concomitant]
     Dosage: 10 mg, QD
     Dates: start: 20120524
  6. NORVASC [Concomitant]
     Dosage: 5 mg, QD
     Dates: start: 20120524

REACTIONS (1)
  - Haemorrhage intracranial [Fatal]
